FAERS Safety Report 10900065 (Version 1)
Quarter: 2015Q1

REPORT INFORMATION
  Report Type: Spontaneous
  Country: US (occurrence: US)
  Receive Date: 20150310
  Receipt Date: 20150310
  Transmission Date: 20150721
  Serious: No
  Sender: FDA-Public Use
  Company Number: US-TEVA-540374USA

PATIENT
  Sex: Female

DRUGS (1)
  1. QUETIAPINE FUMARATE. [Suspect]
     Active Substance: QUETIAPINE FUMARATE
     Indication: ANXIETY
     Route: 065

REACTIONS (3)
  - Drug ineffective [Unknown]
  - Insomnia [Unknown]
  - Sleep disorder [Unknown]

NARRATIVE: CASE EVENT DATE: 20150109
